FAERS Safety Report 20620964 (Version 1)
Quarter: 2022Q1

REPORT INFORMATION
  Report Type: Spontaneous
  Country: DE (occurrence: DE)
  Receive Date: 20220322
  Receipt Date: 20220322
  Transmission Date: 20220423
  Serious: Yes (Other)
  Sender: FDA-Public Use
  Company Number: DE-PFIZER INC-2021400283

PATIENT
  Age: 16 Day
  Sex: Male

DRUGS (1)
  1. REVATIO [Suspect]
     Active Substance: SILDENAFIL CITRATE
     Dosage: UNK

REACTIONS (3)
  - Neonatal hypotension [Unknown]
  - Persistent foetal circulation [Unknown]
  - Off label use [Unknown]

NARRATIVE: CASE EVENT DATE: 20210409
